FAERS Safety Report 14088506 (Version 2)
Quarter: 2017Q4

REPORT INFORMATION
  Report Type: Report from Study
  Country: None (occurrence: US)
  Receive Date: 20171013
  Receipt Date: 20171117
  Transmission Date: 20180321
  Serious: Yes (Hospitalization, Other)
  Sender: FDA-Public Use
  Company Number: US-ABBVIE-17K-163-2125816-00

PATIENT
  Sex: Female

DRUGS (1)
  1. HUMIRA [Suspect]
     Active Substance: ADALIMUMAB
     Indication: CROHN^S DISEASE
     Route: 058

REACTIONS (8)
  - Facial paralysis [Recovered/Resolved]
  - Crohn^s disease [Unknown]
  - Mobility decreased [Unknown]
  - Injection site pain [Unknown]
  - Sensory loss [Unknown]
  - Blood pressure fluctuation [Unknown]
  - Intervertebral disc protrusion [Not Recovered/Not Resolved]
  - Hypertension [Unknown]
